FAERS Safety Report 5294428-8 (Version None)
Quarter: 2007Q2

REPORT INFORMATION
  Report Type: 
  Country: None (occurrence: None)
  Receive Date: 20070409
  Receipt Date: 20070409
  Transmission Date: 20071010
  Serious: Yes (Other)
  Sender: FDA-Public Use
  Company Number: None

PATIENT
  Age: 54 Year
  Sex: Female
  Weight: 73.4827 kg

DRUGS (3)
  1. CLINDAMYCIN [Suspect]
     Indication: TOOTH ABSCESS
     Dosage: 300MG 4 TIMES A DAY PO
     Route: 048
     Dates: start: 20070402, end: 20070404
  2. METRONIDAZOLE [Suspect]
     Indication: CLOSTRIDIUM DIFFICILE COLITIS
     Dosage: 500MG 4 TIMES A DAY PO
     Route: 048
     Dates: start: 20070404, end: 20070407
  3. METRONIDAZOLE [Suspect]
     Indication: TOOTH ABSCESS
     Dosage: 500MG 4 TIMES A DAY PO
     Route: 048
     Dates: start: 20070404, end: 20070407

REACTIONS (10)
  - ABDOMINAL PAIN [None]
  - CLOSTRIDIUM DIFFICILE COLITIS [None]
  - CONSTIPATION [None]
  - DIARRHOEA [None]
  - DYSGEUSIA [None]
  - GLOSSODYNIA [None]
  - HEADACHE [None]
  - NERVOUS SYSTEM DISORDER [None]
  - SOMNOLENCE [None]
  - STOMACH DISCOMFORT [None]
